FAERS Safety Report 9250427 (Version 1)
Quarter: 2013Q1

REPORT INFORMATION
  Report Type: Spontaneous
  Country: US (occurrence: None)
  Receive Date: 20130305
  Receipt Date: 20130305
  Transmission Date: 20140127
  Serious: Yes (Other)
  Sender: FDA-Public Use
  Company Number: 163-21880-12042770

PATIENT
  Age: 45 Year
  Sex: Female

DRUGS (4)
  1. REVLIMID [Suspect]
     Indication: PLASMA CELL MYELOMA
     Dosage: 1 IN 1 D
     Route: 048
     Dates: start: 20120327, end: 20120423
  2. OXYCODONE (OXYCODONE) [Concomitant]
  3. PROZAC (FLUOXETINE HYDROCHLORIDE) [Concomitant]
  4. GENERLAC (LACTULOSE) [Concomitant]

REACTIONS (2)
  - Acute febrile neutrophilic dermatosis [None]
  - Condition aggravated [None]
